FAERS Safety Report 9735720 (Version 3)
Quarter: 2014Q2

REPORT INFORMATION
  Report Type: Spontaneous
  Country: US (occurrence: US)
  Receive Date: 20131206
  Receipt Date: 20140612
  Transmission Date: 20141212
  Serious: Yes (Other)
  Sender: FDA-Public Use
  Company Number: US-ASTELLAS-2013US012720

PATIENT
  Age: 75 Year
  Sex: Male

DRUGS (1)
  1. XTANDI [Suspect]
     Indication: PROSTATE CANCER
     Route: 048
     Dates: start: 20131121

REACTIONS (4)
  - Ocular hyperaemia [Unknown]
  - Rectal haemorrhage [Recovered/Resolved]
  - Ear congestion [Unknown]
  - Hypoacusis [Unknown]
